FAERS Safety Report 13514008 (Version 1)
Quarter: 2017Q2

REPORT INFORMATION
  Report Type: Spontaneous
  Country: US (occurrence: US)
  Receive Date: 20170504
  Receipt Date: 20170504
  Transmission Date: 20170830
  Serious: No
  Sender: FDA-Public Use
  Company Number: US-PFIZER INC-2017191274

PATIENT
  Age: 68 Year
  Sex: Male

DRUGS (3)
  1. ADVIL [Concomitant]
     Active Substance: IBUPROFEN
     Dosage: UNK
  2. ASPIRIN. [Concomitant]
     Active Substance: ASPIRIN
     Dosage: UNK
  3. XELJANZ XR [Suspect]
     Active Substance: TOFACITINIB CITRATE
     Indication: RHEUMATOID ARTHRITIS
     Dosage: 11 MG, DAILY
     Route: 048

REACTIONS (1)
  - Condition aggravated [Unknown]
